FAERS Safety Report 6180460-9 (Version None)
Quarter: 2009Q2

REPORT INFORMATION
  Report Type: 
  Country: None (occurrence: None)
  Receive Date: 20090420
  Receipt Date: 20090407
  Transmission Date: 20091009
  Serious: Yes (Hospitalization)
  Sender: FDA-Public Use
  Company Number: THYM-1000912

PATIENT
  Age: 67 Year
  Sex: Male
  Weight: 72.6 kg

DRUGS (2)
  1. THYMOGLOBULIN [Suspect]
     Indication: APLASTIC ANAEMIA
     Dosage: 253 MG, QD, INTRAVENOUS
     Route: 042
     Dates: start: 20090205, end: 20090209
  2. CYCLOSPORINE [Concomitant]

REACTIONS (2)
  - FEBRILE NEUTROPENIA [None]
  - MYALGIA [None]
